FAERS Safety Report 7791567-4 (Version None)
Quarter: 2011Q3

REPORT INFORMATION
  Report Type: 
  Country: None (occurrence: None)
  Receive Date: 20110930
  Receipt Date: 20110930
  Transmission Date: 20111222
  Serious: Yes (Hospitalization)
  Sender: FDA-Public Use
  Company Number: None

PATIENT
  Age: 77 Year
  Sex: Male
  Weight: 72.5755 kg

DRUGS (2)
  1. TRANSDERM SCOP [Suspect]
     Indication: DROOLING
     Dosage: 1.5 MG 72 HR PATCH BEHIND EAR
     Route: 062
     Dates: start: 20110815
  2. TRANSDERM SCOP [Suspect]
     Indication: DROOLING
     Dosage: 1.5 MG 72 HR PATCH BEHIND EAR
     Route: 062
     Dates: start: 20110818

REACTIONS (5)
  - INSOMNIA [None]
  - HALLUCINATION [None]
  - DYSSTASIA [None]
  - BALANCE DISORDER [None]
  - CONVULSION [None]
